FAERS Safety Report 7348058-4 (Version None)
Quarter: 2011Q1

REPORT INFORMATION
  Report Type: 
  Country: None (occurrence: None)
  Receive Date: 20110311
  Receipt Date: 20110302
  Transmission Date: 20110831
  Serious: Yes (Other)
  Sender: FDA-Public Use
  Company Number: US-SANOFI-AVENTIS-2011SA013682

PATIENT
  Age: 50 Year
  Sex: Female
  Weight: 52.27 kg

DRUGS (6)
  1. MULTIVITAMIN [Concomitant]
  2. PLAVIX [Suspect]
     Indication: STENT PLACEMENT
     Route: 065
  3. PRAVASTATIN [Concomitant]
  4. METOPROLOL [Concomitant]
  5. ASPIRIN [Concomitant]
  6. PLAVIX [Suspect]
     Indication: CORONARY ARTERY OCCLUSION
     Route: 065

REACTIONS (7)
  - HEARING IMPAIRED [None]
  - PAIN IN EXTREMITY [None]
  - THROMBOTIC THROMBOCYTOPENIC PURPURA [None]
  - CONFUSIONAL STATE [None]
  - DISORIENTATION [None]
  - SKIN DISCOLOURATION [None]
  - ARTERIAL OCCLUSIVE DISEASE [None]
